FAERS Safety Report 4878485-6 (Version None)
Quarter: 2006Q1

REPORT INFORMATION
  Report Type: 
  Country: None (occurrence: None)
  Receive Date: 20060110
  Receipt Date: 20051228
  Transmission Date: 20060701
  Serious: Yes (Death, Disabling)
  Sender: FDA-Public Use
  Company Number: 2006_000001

PATIENT
  Sex: 0

DRUGS (1)
  1. DEPOCYT [Suspect]
     Indication: LEUKAEMIA
     Dosage: 50 MG;X1;INTH
     Route: 037

REACTIONS (3)
  - DIPLEGIA [None]
  - LEUKAEMIA RECURRENT [None]
  - OPPORTUNISTIC INFECTION [None]
